FAERS Safety Report 10976901 (Version 3)
Quarter: 2015Q2

REPORT INFORMATION
  Report Type: Report from Study
  Country: US (occurrence: US)
  Receive Date: 20150401
  Receipt Date: 20150419
  Transmission Date: 20150821
  Serious: Yes (Hospitalization)
  Sender: FDA-Public Use
  Company Number: US-MYLANLABS-2015M1009902

PATIENT
  Age: 62 Year
  Sex: Female
  Weight: 87.75 kg

DRUGS (1)
  1. FORMOTEROL FUMARATE SOLUTION (FOR NEBULISATION) [Suspect]
     Active Substance: FORMOTEROL FUMARATE
     Indication: CHRONIC OBSTRUCTIVE PULMONARY DISEASE
     Dosage: 2 ML, BID
     Route: 055
     Dates: start: 20140414, end: 20150320

REACTIONS (4)
  - Pyelonephritis acute [Recovered/Resolved]
  - Abdominal pain [Recovered/Resolved]
  - Nausea [Recovered/Resolved]
  - Vomiting [Recovered/Resolved]

NARRATIVE: CASE EVENT DATE: 20150324
